FAERS Safety Report 16522611 (Version 3)
Quarter: 2019Q3

REPORT INFORMATION
  Report Type: Spontaneous
  Country: US (occurrence: US)
  Receive Date: 20190702
  Receipt Date: 20190823
  Transmission Date: 20191004
  Serious: Yes (Death, Hospitalization, Other)
  Sender: FDA-Public Use
  Company Number: US-GLAXOSMITHKLINE-US2019GSK118224

PATIENT
  Sex: Female

DRUGS (6)
  1. PREVACID [Suspect]
     Active Substance: LANSOPRAZOLE
     Indication: PRODUCT USED FOR UNKNOWN INDICATION
     Dosage: UNK
     Route: 065
  2. OMEPRAZOLE. [Suspect]
     Active Substance: OMEPRAZOLE
     Indication: PEPTIC ULCER
     Dosage: 20 MG, QD
     Route: 048
  3. OMEPRAZOLE. [Suspect]
     Active Substance: OMEPRAZOLE
     Dosage: 20 MG, BID
     Route: 065
  4. OMEPRAZOLE. [Suspect]
     Active Substance: OMEPRAZOLE
     Indication: GASTROOESOPHAGEAL REFLUX DISEASE
     Dosage: 40 MG, QD
     Route: 048
  5. PREVACID [Suspect]
     Active Substance: LANSOPRAZOLE
     Indication: PRODUCT USED FOR UNKNOWN INDICATION
     Dosage: UNK
     Route: 065
  6. PANTOPRAZOLE [Suspect]
     Active Substance: PANTOPRAZOLE
     Indication: GASTROOESOPHAGEAL REFLUX DISEASE
     Dosage: 40 MG, QD
     Route: 065

REACTIONS (22)
  - Ureteric cancer [Unknown]
  - Renal artery stenosis [Unknown]
  - End stage renal disease [Unknown]
  - Renal failure [Unknown]
  - Renal atrophy [Unknown]
  - Device dependence [Unknown]
  - Nephrogenic anaemia [Unknown]
  - Acute kidney injury [Unknown]
  - Azotaemia [Unknown]
  - Nephrolithiasis [Unknown]
  - Chronic kidney disease [Fatal]
  - Haematuria [Unknown]
  - Nephropathy [Unknown]
  - Renal disorder [Unknown]
  - Renal injury [Unknown]
  - Haemodialysis [Unknown]
  - Ureterectomy [Unknown]
  - Hydronephrosis [Unknown]
  - Kidney small [Unknown]
  - Dialysis [Unknown]
  - Renal impairment [Unknown]
  - Renal tubular acidosis [Unknown]
